FAERS Safety Report 4669741-5 (Version None)
Quarter: 2005Q2

REPORT INFORMATION
  Report Type: 
  Country: None (occurrence: None)
  Receive Date: 20050520
  Receipt Date: 20050503
  Transmission Date: 20051028
  Serious: Yes (Hospitalization, Other)
  Sender: FDA-Public Use
  Company Number: HQWYE112819APR05

PATIENT
  Age: 81 Year
  Sex: Female
  Weight: 92.16 kg

DRUGS (2)
  1. MYLOTARG [Suspect]
     Indication: MYELODYSPLASTIC SYNDROME
     Dosage: 14 MG 1X PER 1 DAY, INTRAVENOUS
     Route: 042
     Dates: start: 20050414, end: 20050414
  2. BENADRYL [Concomitant]

REACTIONS (9)
  - BACTERAEMIA [None]
  - BLOOD POTASSIUM DECREASED [None]
  - CENTRAL LINE INFECTION [None]
  - CULTURE URINE POSITIVE [None]
  - FEBRILE NEUTROPENIA [None]
  - HYPOTENSION [None]
  - KLEBSIELLA INFECTION [None]
  - TREMOR [None]
  - URINARY TRACT INFECTION [None]
